FAERS Safety Report 5422344-7 (Version None)
Quarter: 2007Q3

REPORT INFORMATION
  Report Type: 
  Country: None (occurrence: None)
  Receive Date: 20070822
  Receipt Date: 20070813
  Transmission Date: 20080115
  Serious: Yes (Death, Other)
  Sender: FDA-Public Use
  Company Number: CA-ELI_LILLY_AND_COMPANY-CA200703001963

PATIENT
  Age: 87 Year
  Sex: Female

DRUGS (6)
  1. ALENDRONATE SODIUM [Concomitant]
     Dosage: 70 MG, WEEKLY (1/W)
     Dates: start: 20000201, end: 20060705
  2. ACTONEL [Concomitant]
     Dosage: 35 MG, WEEKLY (1/W)
     Route: 048
     Dates: start: 20060706
  3. TERIPARATIDE [Suspect]
     Indication: OSTEOPOROSIS
     Dosage: 20 UG, DAILY (1/D)
     Route: 058
     Dates: start: 20031203, end: 20050607
  4. CALCIUM W/VITAMIN D NOS [Concomitant]
     Dosage: 250 MG, 2/D
     Route: 048
  5. VITAMIN D [Concomitant]
     Dosage: 1000 U, DAILY (1/D)
     Route: 048
  6. VITAMIN D [Concomitant]
     Dosage: 400 U, DAILY (1/D)
     Route: 048

REACTIONS (4)
  - BREAST CANCER [None]
  - LUNG NEOPLASM MALIGNANT [None]
  - METASTATIC SQUAMOUS CELL CARCINOMA [None]
  - NEOPLASM MALIGNANT [None]
